FAERS Safety Report 8130825-0 (Version None)
Quarter: 2012Q1

REPORT INFORMATION
  Report Type: 
  Country: None (occurrence: None)
  Receive Date: 20120213
  Receipt Date: 20120203
  Transmission Date: 20120608
  Serious: No
  Sender: FDA-Public Use
  Company Number: US-BIOGENIDEC-2012BI004654

PATIENT
  Sex: Female

DRUGS (2)
  1. AVONEX [Suspect]
     Route: 030
     Dates: start: 20030101
  2. AVONEX [Suspect]
     Indication: MULTIPLE SCLEROSIS
     Route: 030
     Dates: start: 20000324, end: 20030101

REACTIONS (19)
  - STRABISMUS [None]
  - AFFECT LABILITY [None]
  - CONFUSIONAL STATE [None]
  - CENTRAL NERVOUS SYSTEM LESION [None]
  - INJECTION SITE PAIN [None]
  - DEPRESSION [None]
  - TREMOR [None]
  - ANKLE FRACTURE [None]
  - TINNITUS [None]
  - RESTLESS LEGS SYNDROME [None]
  - NAUSEA [None]
  - MULTIPLE SCLEROSIS [None]
  - BALANCE DISORDER [None]
  - MYALGIA [None]
  - SUICIDAL IDEATION [None]
  - MUSCLE SPASTICITY [None]
  - DIPLOPIA [None]
  - VEIN DISORDER [None]
  - MUSCLE TIGHTNESS [None]
